FAERS Safety Report 7352612-3 (Version None)
Quarter: 2011Q1

REPORT INFORMATION
  Report Type: 
  Country: None (occurrence: None)
  Receive Date: 20110301
  Receipt Date: 20100128
  Transmission Date: 20110831
  Serious: Yes (Hospitalization)
  Sender: FDA-Public Use
  Company Number: RB-01645-2010

PATIENT
  Age: 40 Year
  Sex: Male

DRUGS (2)
  1. SUBOXONE [Suspect]
     Indication: DRUG DEPENDENCE
     Dosage: (8 MG BID SUBLINGUAL), (TAPER DOWN TO 2 MG A DAY AND THEN STOPPED MEDICATION SUBLINGUAL)
     Route: 060
     Dates: start: 20070301, end: 20090101
  2. SUBOXONE [Suspect]
     Indication: DRUG DEPENDENCE
     Dosage: (8 MG BID SUBLINGUAL), (TAPER DOWN TO 2 MG A DAY AND THEN STOPPED MEDICATION SUBLINGUAL)
     Route: 060
     Dates: start: 20090101, end: 20091230

REACTIONS (2)
  - VOMITING [None]
  - DRUG WITHDRAWAL SYNDROME [None]
